FAERS Safety Report 8439401-3 (Version None)
Quarter: 2012Q2

REPORT INFORMATION
  Report Type: 
  Country: None (occurrence: None)
  Receive Date: 20120615
  Receipt Date: 20120613
  Transmission Date: 20120825
  Serious: Yes (Death, Other)
  Sender: FDA-Public Use
  Company Number: PHHY2012IN029677

PATIENT
  Age: 88 Year
  Sex: Female

DRUGS (4)
  1. FEMARA [Suspect]
     Indication: BREAST CANCER
     Dosage: 2.5 MG, QD
     Dates: start: 20110716
  2. ZOLEDRONIC ACID [Concomitant]
  3. CALCIUM [Concomitant]
  4. ALLOPURINOL [Concomitant]
     Dosage: 100 MG, QD

REACTIONS (7)
  - HEMIPARESIS [None]
  - CEREBROVASCULAR ACCIDENT [None]
  - DEEP VEIN THROMBOSIS [None]
  - RESPIRATORY FAILURE [None]
  - BREAST CANCER [None]
  - CHRONIC OBSTRUCTIVE PULMONARY DISEASE [None]
  - SENSORY DISTURBANCE [None]
